FAERS Safety Report 19985687 (Version 1)
Quarter: 2021Q4

REPORT INFORMATION
  Report Type: Spontaneous
  Country: AT (occurrence: AT)
  Receive Date: 20211022
  Receipt Date: 20211022
  Transmission Date: 20220303
  Serious: Yes (Hospitalization, Other)
  Sender: FDA-Public Use
  Company Number: AT-ABBVIE-21K-009-4126454-00

PATIENT
  Sex: Female

DRUGS (2)
  1. VENETOCLAX [Suspect]
     Active Substance: VENETOCLAX
     Indication: Acute myeloid leukaemia
     Dosage: 3 CYCLES IN TOTAL
     Route: 048
  2. VIDAZA [Concomitant]
     Active Substance: AZACITIDINE
     Indication: Acute myeloid leukaemia

REACTIONS (9)
  - COVID-19 [Unknown]
  - Lung infiltration [Unknown]
  - Pleural effusion [Unknown]
  - Pancytopenia [Unknown]
  - Febrile neutropenia [Unknown]
  - Pneumonia klebsiella [Unknown]
  - Intertrigo [Unknown]
  - Decubitus ulcer [Unknown]
  - Impaired healing [Unknown]
